FAERS Safety Report 24185514 (Version 2)
Quarter: 2024Q4

REPORT INFORMATION
  Report Type: Spontaneous
  Country: US (occurrence: US)
  Receive Date: 20240807
  Receipt Date: 20241001
  Transmission Date: 20250114
  Serious: Yes (Death, Hospitalization, Other)
  Sender: BRISTOL MYERS SQUIBB
  Company Number: US-BRISTOL-MYERS SQUIBB COMPANY-2024-124503

PATIENT
  Age: 66 Year
  Sex: Male
  Weight: 103 kg

DRUGS (11)
  1. POMALYST [Suspect]
     Active Substance: POMALIDOMIDE
     Indication: Plasma cell myeloma
     Route: 048
     Dates: start: 20240703, end: 20240718
  2. ZYLOPRIM [Concomitant]
     Active Substance: ALLOPURINOL
     Route: 048
     Dates: start: 20240703, end: 20240718
  3. COREG [Concomitant]
     Active Substance: CARVEDILOL
     Route: 048
     Dates: start: 20231006, end: 20240718
  4. LASIX [Concomitant]
     Active Substance: FUROSEMIDE
     Route: 048
     Dates: start: 20240703, end: 20240718
  5. KEPPRA [Concomitant]
     Active Substance: LEVETIRACETAM
     Route: 048
     Dates: start: 20240621, end: 20240718
  6. ZOFRAN [Concomitant]
     Active Substance: ONDANSETRON HYDROCHLORIDE
     Indication: Nausea
     Dosage: TAKE 1 TABLET BY MOUTH 30 MINUTES PRIOR TO EACH SELINEXOR DOSE, THEN TAKE EVERY 8 HOURS AS NEEDED
     Route: 048
     Dates: start: 20240501, end: 20240718
  7. ZOFRAN [Concomitant]
     Active Substance: ONDANSETRON HYDROCHLORIDE
     Indication: Vomiting
  8. OMEPRAZOLE [Concomitant]
     Active Substance: OMEPRAZOLE
     Route: 048
     Dates: start: 20240605, end: 20240718
  9. RENVELA [Concomitant]
     Active Substance: SEVELAMER CARBONATE
     Route: 048
     Dates: start: 20240702, end: 20240718
  10. BACTRIM [Concomitant]
     Active Substance: SULFAMETHOXAZOLE\TRIMETHOPRIM
     Dosage: DOSE- 400-80MG
     Route: 048
     Dates: start: 20240622, end: 20240718
  11. VALTREX [Concomitant]
     Active Substance: VALACYCLOVIR HYDROCHLORIDE
     Route: 048
     Dates: start: 20240206, end: 20240718

REACTIONS (9)
  - Cardiac arrest [Fatal]
  - Respiratory arrest [Fatal]
  - Plasma cell myeloma [Not Recovered/Not Resolved]
  - Hypotension [Unknown]
  - Pneumonia [Unknown]
  - Bacteraemia [Unknown]
  - Perforation [Unknown]
  - Abdominal pain [Not Recovered/Not Resolved]
  - Failure to thrive [Unknown]

NARRATIVE: CASE EVENT DATE: 20240701
